FAERS Safety Report 17545693 (Version 1)
Quarter: 2020Q1

REPORT INFORMATION
  Report Type: Spontaneous
  Country: US (occurrence: US)
  Receive Date: 20200306
  Receipt Date: 20200306
  Transmission Date: 20200409
  Serious: Yes (Hospitalization)
  Sender: FDA-Public Use
  Company Number: None

PATIENT
  Age: 68 Year
  Sex: Male

DRUGS (1)
  1. SULFAMETHOXAZOLE/TRIMETHOPRIM [Suspect]
     Active Substance: SULFAMETHOXAZOLE\TRIMETHOPRIM
     Dosage: ?          OTHER STRENGTH:400MG/80MG;?
     Dates: start: 20191017, end: 20191027

REACTIONS (3)
  - Hyperkalaemia [None]
  - Acute kidney injury [None]
  - Thrombocytopenia [None]

NARRATIVE: CASE EVENT DATE: 20191031
